FAERS Safety Report 17394716 (Version 2)
Quarter: 2020Q1

REPORT INFORMATION
  Report Type: Spontaneous
  Country: SG (occurrence: SG)
  Receive Date: 20200210
  Receipt Date: 20200220
  Transmission Date: 20200409
  Serious: Yes (Hospitalization, Other)
  Sender: FDA-Public Use
  Company Number: SG-MACLEODS PHARMACEUTICALS US LTD-MAC2020025037

PATIENT

DRUGS (4)
  1. AZATHIOPRINE. [Concomitant]
     Active Substance: AZATHIOPRINE
     Indication: DYSHIDROTIC ECZEMA
     Dosage: UNK
     Route: 065
     Dates: start: 2018, end: 2019
  2. AMLODIPINE [Suspect]
     Active Substance: AMLODIPINE BESYLATE
     Indication: HYPERTENSION
     Dosage: 5 MILLIGRAM, QD
     Route: 065
     Dates: start: 201312, end: 201605
  3. AMLODIPINE [Suspect]
     Active Substance: AMLODIPINE BESYLATE
     Dosage: UNK
     Route: 065
     Dates: start: 2018, end: 2019
  4. CYCLOSPORIN [Concomitant]
     Active Substance: CYCLOSPORINE
     Indication: DYSHIDROTIC ECZEMA
     Dosage: UNK
     Route: 065
     Dates: start: 2017, end: 201902

REACTIONS (2)
  - Granuloma [Recovered/Resolved]
  - Pseudolymphoma [Recovered/Resolved]

NARRATIVE: CASE EVENT DATE: 2018
